FAERS Safety Report 21557047 (Version 1)
Quarter: 2022Q4

REPORT INFORMATION
  Report Type: Spontaneous
  Country: US (occurrence: US)
  Receive Date: 20221104
  Receipt Date: 20221104
  Transmission Date: 20230112
  Serious: Yes (Death, Hospitalization)
  Sender: FDA-Public Use
  Company Number: US-MALLINCKRODT-T202205756

PATIENT
  Age: 55 Year
  Sex: Female

DRUGS (1)
  1. H.P. ACTHAR [Suspect]
     Active Substance: CORTICOTROPIN
     Indication: Sarcoidosis
     Dosage: UNK
     Route: 065

REACTIONS (2)
  - Death [Fatal]
  - Cardiac failure [Recovered/Resolved]
